FAERS Safety Report 10304496 (Version 1)
Quarter: 2014Q3

REPORT INFORMATION
  Report Type: Report from Study
  Country: BR (occurrence: BR)
  Receive Date: 20140715
  Receipt Date: 20140715
  Transmission Date: 20150326
  Serious: Yes (Hospitalization)
  Sender: FDA-Public Use
  Company Number: BR-ROCHE-1433831

PATIENT
  Age: 62 Year
  Sex: Female
  Weight: 70 kg

DRUGS (11)
  1. MABTHERA [Suspect]
     Active Substance: RITUXIMAB
     Indication: RHEUMATOID ARTHRITIS
     Dosage: SUBSEQUENT DOSES ON:  26/DEC/2013 (DAY 15) AND 26/JUN/2014 (DAY 1).
     Route: 042
     Dates: start: 20131211
  2. PREDNISONE. [Concomitant]
     Active Substance: PREDNISONE
     Indication: RHEUMATOID ARTHRITIS
  3. PANTOPRAZOLE [Concomitant]
     Active Substance: PANTOPRAZOLE SODIUM
     Indication: GASTRIC DISORDER
  4. SIMVASTATIN. [Concomitant]
     Active Substance: SIMVASTATIN
  5. SOMALGEN [Concomitant]
     Indication: HYPERTENSION
  6. DEPURA [Concomitant]
     Active Substance: CHOLECALCIFEROL
     Indication: OSTEOPOROSIS
     Route: 065
  7. REUQUINOL [Concomitant]
     Active Substance: HYDROXYCHLOROQUINE SULFATE
     Indication: RHEUMATOID ARTHRITIS
  8. LOSARTAN [Concomitant]
     Active Substance: LOSARTAN
     Indication: HYPERTENSION
  9. AMLODIPINE BESILATE [Concomitant]
     Active Substance: AMLODIPINE BESYLATE
     Indication: HYPERTENSION
  10. GLIMEPIRIDE. [Concomitant]
     Active Substance: GLIMEPIRIDE
     Indication: DIABETES MELLITUS
  11. GLIFAGE XR [Concomitant]
     Active Substance: METFORMIN HYDROCHLORIDE
     Indication: DIABETES MELLITUS

REACTIONS (7)
  - Sluggishness [Unknown]
  - Faeces discoloured [Unknown]
  - Musculoskeletal disorder [Unknown]
  - Accident [Unknown]
  - Nausea [Unknown]
  - Bone disorder [Unknown]
  - Dysentery [Unknown]

NARRATIVE: CASE EVENT DATE: 20140626
